FAERS Safety Report 25855057 (Version 2)
Quarter: 2025Q3

REPORT INFORMATION
  Report Type: Spontaneous
  Country: EU (occurrence: EU)
  Receive Date: 20250927
  Receipt Date: 20250929
  Transmission Date: 20251020
  Serious: Yes (Hospitalization, Other)
  Sender: SANOFI AVENTIS
  Company Number: EU-SA-2024SA311304

PATIENT
  Age: 42 Year
  Sex: Male

DRUGS (5)
  1. TERIFLUNOMIDE [Suspect]
     Active Substance: TERIFLUNOMIDE
     Indication: Multiple sclerosis
     Dosage: 14 MG, QD
     Route: 048
     Dates: start: 20140515, end: 20240909
  2. TERIFLUNOMIDE [Suspect]
     Active Substance: TERIFLUNOMIDE
     Dosage: 14 MG, QD
     Route: 048
     Dates: start: 20250218, end: 20250726
  3. CHOLECALCIFEROL [Concomitant]
     Active Substance: CHOLECALCIFEROL
     Dosage: 25000 E, QW
  4. EBASTINE SANDOZ [Concomitant]
     Dosage: 20 MG, QD
  5. MOMETASONE EG [Concomitant]
     Dosage: 50 UG, BID
     Route: 045

REACTIONS (13)
  - Abdominal pain [Unknown]
  - Intussusception [Unknown]
  - Fatigue [Unknown]
  - Bowel movement irregularity [Unknown]
  - Nervous system disorder [Unknown]
  - Gastrointestinal polyp [Unknown]
  - Anorectal polyp [Unknown]
  - Nodule [Unknown]
  - COVID-19 [Unknown]
  - Pyrexia [Unknown]
  - Respiratory tract infection [Unknown]
  - Folliculitis [Unknown]
  - Oropharyngeal pain [Unknown]

NARRATIVE: CASE EVENT DATE: 20211201
